FAERS Safety Report 18549856 (Version 1)
Quarter: 2020Q4

REPORT INFORMATION
  Report Type: Spontaneous
  Country: IT (occurrence: IT)
  Receive Date: 20201126
  Receipt Date: 20201126
  Transmission Date: 20210114
  Serious: Yes (Other)
  Sender: FDA-Public Use
  Company Number: IT-PFIZER INC-2020466348

PATIENT
  Age: 79 Year
  Sex: Female

DRUGS (5)
  1. TRANQUIRIT [Suspect]
     Active Substance: DIAZEPAM
     Indication: DEPRESSION
     Dosage: 1 DF, SINGLE
     Route: 048
     Dates: start: 20190205, end: 20190205
  2. OPTALIDON [BUTALBITAL;CAFFEINE;PROPYPHENAZONE] [Suspect]
     Active Substance: BUTALBITAL\CAFFEINE\PROPYPHENAZONE
     Indication: DYSARTHRIA
     Dosage: 1 DF, AS NEEDED
     Route: 048
     Dates: start: 20190205, end: 20190205
  3. XANAX [Suspect]
     Active Substance: ALPRAZOLAM
     Indication: DEPRESSION
     Dosage: 1 DF, SINGLE
     Route: 048
     Dates: start: 20190205, end: 20190205
  4. CARBOLITHIUM [Suspect]
     Active Substance: LITHIUM CARBONATE
     Indication: DEPRESSION
     Dosage: 2 DF, 1X/DAY
     Route: 048
     Dates: start: 20190120, end: 20190205
  5. FELDENE [Suspect]
     Active Substance: PIROXICAM
     Indication: DYSARTHRIA
     Dosage: 1 DF, AS NEEDED
     Route: 048
     Dates: start: 20190202, end: 20190205

REACTIONS (6)
  - Tremor [Recovering/Resolving]
  - Behaviour disorder [Recovering/Resolving]
  - Drug abuse [Recovering/Resolving]
  - Dysphoria [Recovering/Resolving]
  - Inappropriate affect [Recovering/Resolving]
  - Logorrhoea [Recovering/Resolving]

NARRATIVE: CASE EVENT DATE: 20190205
